FAERS Safety Report 9418983 (Version 1)
Quarter: 2013Q3

REPORT INFORMATION
  Report Type: Spontaneous
  Country: CN (occurrence: CN)
  Receive Date: 20130725
  Receipt Date: 20130725
  Transmission Date: 20140515
  Serious: Yes (Other)
  Sender: FDA-Public Use
  Company Number: PHHY2013CN076592

PATIENT
  Age: 8 Year
  Sex: Male

DRUGS (7)
  1. CICLOSPORIN [Suspect]
     Indication: ACUTE GRAFT VERSUS HOST DISEASE IN SKIN
  2. CICLOSPORIN [Suspect]
     Indication: CHRONIC GRAFT VERSUS HOST DISEASE
  3. TACROLIMUS [Suspect]
     Indication: ACUTE GRAFT VERSUS HOST DISEASE IN SKIN
  4. TACROLIMUS [Suspect]
     Indication: CHRONIC GRAFT VERSUS HOST DISEASE
  5. PREDNISONE [Suspect]
  6. STEROIDS [Concomitant]
     Indication: ACUTE GRAFT VERSUS HOST DISEASE IN SKIN
  7. STEROIDS [Concomitant]
     Indication: CHRONIC GRAFT VERSUS HOST DISEASE

REACTIONS (6)
  - Drug resistance [Unknown]
  - Acute graft versus host disease in skin [Unknown]
  - Chronic graft versus host disease [Unknown]
  - Immune thrombocytopenic purpura [Unknown]
  - Rash [Recovered/Resolved]
  - Blood blister [Unknown]
